FAERS Safety Report 7496568-1 (Version None)
Quarter: 2011Q2

REPORT INFORMATION
  Report Type: 
  Country: None (occurrence: None)
  Receive Date: 20110523
  Receipt Date: 20110301
  Transmission Date: 20111010
  Serious: Yes (Death)
  Sender: FDA-Public Use
  Company Number: DE-ACTELION-A-US2011-49070

PATIENT

DRUGS (1)
  1. VENTAVIS [Suspect]
     Indication: PRODUCT USED FOR UNKNOWN INDICATION
     Dosage: 2.5 UG, TID
     Route: 055
     Dates: start: 20090730, end: 20110101

REACTIONS (2)
  - DIZZINESS [None]
  - DEATH [None]
